FAERS Safety Report 9607503 (Version 2)
Quarter: 2014Q1

REPORT INFORMATION
  Report Type: Spontaneous
  Country: US (occurrence: US)
  Receive Date: 20131009
  Receipt Date: 20140109
  Transmission Date: 20141002
  Serious: Yes (Death, Life-Threatening, Other)
  Sender: FDA-Public Use
  Company Number: US-JNJFOC-20131002555

PATIENT
  Sex: 0

DRUGS (9)
  1. DOXORUBICIN [Suspect]
     Indication: WALDENSTROM^S MACROGLOBULINAEMIA
     Dosage: 9 MG/M2/DAY BY CONTINUOUS INFUSION D1-4
     Route: 042
  2. 2-CHLORODEOXYADENOSINE [Suspect]
     Indication: WALDENSTROM^S MACROGLOBULINAEMIA
     Dosage: 3 MG/M2/DAY
     Route: 042
  3. CYCLOPHOSPHAMIDE [Suspect]
     Indication: WALDENSTROM^S MACROGLOBULINAEMIA
     Dosage: 60 MG/M2/DAYX5 DAYS PO
     Route: 042
  4. CYCLOPHOSPHAMIDE [Suspect]
     Indication: WALDENSTROM^S MACROGLOBULINAEMIA
     Dosage: 8 DOSES
     Route: 042
  5. VINCRISTINE [Suspect]
     Indication: WALDENSTROM^S MACROGLOBULINAEMIA
     Dosage: 0.4 MG/DAY
     Route: 042
  6. DEXAMETHASONE [Suspect]
     Indication: WALDENSTROM^S MACROGLOBULINAEMIA
     Dosage: 20 MG/M2/DAY, D1-4, 9-12, 17-20
     Route: 065
  7. VALACYCLOVIR [Suspect]
     Indication: PROPHYLAXIS
     Route: 065
  8. FILGRASTIM [Suspect]
     Indication: BLOOD STEM CELL HARVEST
     Route: 065
  9. RITUXIMAB [Suspect]
     Indication: WALDENSTROM^S MACROGLOBULINAEMIA
     Dosage: ON DAY 1
     Route: 042

REACTIONS (7)
  - Disease progression [Fatal]
  - Amyloidosis [Fatal]
  - Neuropathy peripheral [Unknown]
  - Neutropenia [Unknown]
  - Fatigue [Unknown]
  - Infection [Unknown]
  - Nausea [Unknown]
